FAERS Safety Report 24076242 (Version 1)
Quarter: 2024Q3

REPORT INFORMATION
  Report Type: Report from Study
  Country: US (occurrence: US)
  Receive Date: 20240711
  Receipt Date: 20240711
  Transmission Date: 20241016
  Serious: Yes (Other)
  Sender: ABBVIE
  Company Number: US-ABBVIE-5826407

PATIENT
  Age: 41 Year
  Sex: Female

DRUGS (3)
  1. HUMIRA [Suspect]
     Active Substance: ADALIMUMAB
     Indication: Crohn^s disease
     Dosage: UNKNOWN
     Route: 058
     Dates: start: 20160101, end: 201611
  2. REMICADE [Suspect]
     Active Substance: INFLIXIMAB
     Indication: Product used for unknown indication
     Route: 065
  3. STELARA [Concomitant]
     Active Substance: USTEKINUMAB
     Indication: Product used for unknown indication

REACTIONS (9)
  - Systemic lupus erythematosus [Recovered/Resolved]
  - Autoimmune disorder [Recovered/Resolved]
  - Maternal exposure during pregnancy [Recovered/Resolved]
  - Psoriasis [Unknown]
  - Back pain [Recovered/Resolved]
  - Dermatitis [Unknown]
  - Haemorrhage [Unknown]
  - Skin ulcer [Unknown]
  - Abortion spontaneous [Unknown]

NARRATIVE: CASE EVENT DATE: 20161101
